FAERS Safety Report 9846020 (Version 2)
Quarter: 2014Q1

REPORT INFORMATION
  Report Type: Spontaneous
  Country: US (occurrence: US)
  Receive Date: 20140127
  Receipt Date: 20140127
  Transmission Date: 20141002
  Serious: Yes (Hospitalization, Disabling, Other)
  Sender: FDA-Public Use
  Company Number: US-009507513-1106USA01822

PATIENT
  Sex: Female
  Weight: 55.16 kg

DRUGS (1)
  1. FOSAMAX [Suspect]
     Indication: OSTEOPOROSIS
     Dosage: 70 MG, UNK
     Route: 048
     Dates: start: 20051115, end: 20100729

REACTIONS (10)
  - Femur fracture [Unknown]
  - Intramedullary rod insertion [Unknown]
  - Anaemia [Unknown]
  - Hypersensitivity [Unknown]
  - Hypertension [Unknown]
  - Adverse event [Unknown]
  - Myositis ossificans [Unknown]
  - Cataract [Unknown]
  - Plantar fasciitis [Unknown]
  - Exostosis [Unknown]
